FAERS Safety Report 7906761-9 (Version None)
Quarter: 2011Q4

REPORT INFORMATION
  Report Type: 
  Country: None (occurrence: None)
  Receive Date: 20111109
  Receipt Date: 20111109
  Transmission Date: 20120403
  Serious: Yes (Other)
  Sender: FDA-Public Use
  Company Number: None

PATIENT
  Sex: Female
  Weight: 71.2147 kg

DRUGS (1)
  1. MULTIVITAMIN [Suspect]
     Indication: VITAMIN SUPPLEMENTATION
     Dosage: ONE A DAY DAILY
     Dates: start: 20110901

REACTIONS (4)
  - DYSPNOEA [None]
  - FEELING ABNORMAL [None]
  - FATIGUE [None]
  - HEADACHE [None]
